FAERS Safety Report 7836490-1 (Version None)
Quarter: 2011Q4

REPORT INFORMATION
  Report Type: 
  Country: None (occurrence: None)
  Receive Date: 20111024
  Receipt Date: 20110527
  Transmission Date: 20120403
  Serious: No
  Sender: FDA-Public Use
  Company Number: US-ABBOTT-11P-163-0729511-00

PATIENT
  Sex: Female
  Weight: 78.996 kg

DRUGS (3)
  1. LUPRON DEPOT [Suspect]
     Indication: VAGINAL HAEMORRHAGE
     Route: 030
     Dates: start: 20110525
  2. IBUPROFEN [Concomitant]
     Indication: ABDOMINAL PAIN
  3. LUPRON DEPOT [Suspect]
     Indication: ENDOMETRIOSIS
     Route: 030
     Dates: start: 20011009, end: 20011009

REACTIONS (3)
  - VAGINAL HAEMORRHAGE [None]
  - HAEMOGLOBIN DECREASED [None]
  - FATIGUE [None]
